FAERS Safety Report 9850996 (Version 1)
Quarter: 2014Q1

REPORT INFORMATION
  Report Type: Spontaneous
  Country: CA (occurrence: CA)
  Receive Date: 20140128
  Receipt Date: 20140128
  Transmission Date: 20141002
  Serious: Yes (Other)
  Sender: FDA-Public Use
  Company Number: CA-009507513-1401CAN011237

PATIENT
  Sex: 0

DRUGS (6)
  1. TEMOZOLOMIDE [Suspect]
     Dosage: 150.0 MG/KG, QD
     Route: 065
  2. TEMOZOLOMIDE [Suspect]
     Dosage: 150.0 MG/M2, QD
     Route: 065
  3. AFINITOR [Suspect]
     Dosage: 5.0 MG, QD
     Route: 048
  4. AFINITOR [Suspect]
     Dosage: 2.5 MG, QD
     Route: 048
  5. AFINITOR [Suspect]
     Dosage: 2.5 MG, QD
     Route: 048
  6. TEMOZOLOMIDE [Suspect]
     Dosage: 200.0 MG/M2, QD
     Route: 065

REACTIONS (2)
  - Left ventricular dysfunction [Unknown]
  - Supraventricular tachycardia [Unknown]
